FAERS Safety Report 6963893-X (Version None)
Quarter: 2010Q3

REPORT INFORMATION
  Report Type: 
  Country: None (occurrence: None)
  Receive Date: 20100902
  Receipt Date: 20100901
  Transmission Date: 20110219
  Serious: Yes (Hospitalization, Other)
  Sender: FDA-Public Use
  Company Number: US-MERCK-1005USA00049

PATIENT
  Age: 84 Year
  Sex: Female
  Weight: 68 kg

DRUGS (3)
  1. FOSAMAX [Suspect]
     Indication: BONE DISORDER
     Route: 048
     Dates: start: 20040115, end: 20060101
  2. ACTONEL [Suspect]
     Indication: BONE DISORDER
     Route: 065
     Dates: start: 20060401, end: 20081001
  3. FOSAMAX PLUS D [Suspect]
     Indication: BONE DISORDER
     Route: 048
     Dates: start: 20060126, end: 20060101

REACTIONS (20)
  - ABDOMINAL PAIN [None]
  - ACTINOMYCOSIS [None]
  - ARTHROPATHY [None]
  - CATARACT [None]
  - CEMENTO OSSEOUS DYSPLASIA [None]
  - CEREBROVASCULAR ACCIDENT [None]
  - DYSGEUSIA [None]
  - EXOSTOSIS [None]
  - GASTRIC ULCER [None]
  - INTESTINAL OBSTRUCTION [None]
  - ORAL INFECTION [None]
  - OSTEOARTHRITIS [None]
  - OSTEOMYELITIS [None]
  - OSTEONECROSIS OF JAW [None]
  - OSTEOSCLEROSIS [None]
  - PAIN [None]
  - ROTATOR CUFF SYNDROME [None]
  - SINUSITIS [None]
  - THROMBOPHLEBITIS SUPERFICIAL [None]
  - VASCULAR RUPTURE [None]
